FAERS Safety Report 5622978-0 (Version None)
Quarter: 2008Q1

REPORT INFORMATION
  Report Type: 
  Country: None (occurrence: None)
  Receive Date: 20080212
  Receipt Date: 20080207
  Transmission Date: 20080703
  Serious: Yes (Other)
  Sender: FDA-Public Use
  Company Number: BR-ASTRAZENECA-2008UW02736

PATIENT
  Age: 80 Year
  Sex: Male

DRUGS (2)
  1. LOSEC I.V. [Suspect]
     Indication: GASTRITIS
     Route: 048
     Dates: start: 20070101, end: 20070101
  2. LOSEC I.V. [Suspect]
     Route: 048
     Dates: start: 20080101

REACTIONS (3)
  - CEREBROVASCULAR ACCIDENT [None]
  - CHROMATURIA [None]
  - URINE ODOUR ABNORMAL [None]
